FAERS Safety Report 25084415 (Version 1)
Quarter: 2025Q1

REPORT INFORMATION
  Report Type: Spontaneous
  Country: CN (occurrence: CN)
  Receive Date: 20250317
  Receipt Date: 20250317
  Transmission Date: 20250408
  Serious: Yes (Death, Other)
  Sender: MERCK SHARP & DOHME LLC
  Company Number: CN-009507513-2263032

PATIENT
  Age: 56 Year
  Sex: Male

DRUGS (1)
  1. PEMBROLIZUMAB [Suspect]
     Active Substance: PEMBROLIZUMAB
     Indication: Renal cell carcinoma

REACTIONS (6)
  - Septic shock [Fatal]
  - Immune-mediated lung disease [Recovered/Resolved]
  - Respiratory failure [Fatal]
  - Respiratory distress [Unknown]
  - Immune-mediated lung disease [Unknown]
  - Product use issue [Unknown]
